FAERS Safety Report 19970310 (Version 1)
Quarter: 2021Q4

REPORT INFORMATION
  Report Type: Spontaneous
  Country: US (occurrence: US)
  Receive Date: 20211019
  Receipt Date: 20211019
  Transmission Date: 20220303
  Serious: No
  Sender: FDA-Public Use
  Company Number: US-GALDERMA-US2021017113

PATIENT

DRUGS (5)
  1. PROACTIV MD ADAPALENE ACNE TREATMENT [Suspect]
     Active Substance: ADAPALENE
     Indication: Product used for unknown indication
     Dosage: 1 DOSAGE FORM, SINGLE
     Route: 061
     Dates: start: 202104, end: 20210825
  2. PROACTIV EMERGENCY BLEMISH RELIEF [Concomitant]
     Active Substance: BENZOYL PEROXIDE
     Indication: Product used for unknown indication
     Dosage: 1 DOSAGE FORM, SINGLE
     Route: 061
     Dates: start: 202104, end: 20210825
  3. Proactiv Redness Relief Serum [Concomitant]
     Indication: Product used for unknown indication
     Dosage: 1 DOSAGE FORM, SINGLE
     Route: 061
     Dates: start: 202104, end: 20210825
  4. COSMETICS [Concomitant]
     Active Substance: COSMETICS
     Indication: Product used for unknown indication
     Dosage: 1 DOSAGE FORM, SINGLE
     Route: 061
     Dates: start: 202104, end: 20210825
  5. TEGRETOL [Concomitant]
     Active Substance: CARBAMAZEPINE
     Indication: Product used for unknown indication

REACTIONS (2)
  - Acne [Recovering/Resolving]
  - Dermatitis [Recovering/Resolving]

NARRATIVE: CASE EVENT DATE: 20210601
